FAERS Safety Report 4972901-7 (Version None)
Quarter: 2006Q2

REPORT INFORMATION
  Report Type: 
  Country: None (occurrence: None)
  Receive Date: 20060410
  Receipt Date: 20060324
  Transmission Date: 20061013
  Serious: Yes (Other)
  Sender: FDA-Public Use
  Company Number: 230854K03USA

PATIENT
  Age: 38 Year
  Sex: Female
  Weight: 43.5453 kg

DRUGS (7)
  1. REBIF [Suspect]
     Indication: RELAPSING-REMITTING MULTIPLE SCLEROSIS
     Dosage: 22 MCG, 3 IN 1 WEEKS, SUBCUTANEOUS
     Route: 058
     Dates: start: 20030307, end: 20030317
  2. BACLOFEN [Concomitant]
  3. TOPIRAMATE [Concomitant]
  4. CITALOPRAM/00582601/ [Concomitant]
  5. DIAZEPAM [Concomitant]
  6. TOPIRAMATE [Concomitant]
  7. ORAL CONTRACEPTIVE NOS. [Concomitant]

REACTIONS (6)
  - ANTIMITOCHONDRIAL ANTIBODY POSITIVE [None]
  - ANTINUCLEAR ANTIBODY POSITIVE [None]
  - HEPATIC NECROSIS [None]
  - HEPATIC TRAUMA [None]
  - HEPATITIS [None]
  - LABORATORY TEST ABNORMAL [None]
